FAERS Safety Report 8514345-7 (Version None)
Quarter: 2012Q3

REPORT INFORMATION
  Report Type: 
  Country: None (occurrence: None)
  Receive Date: 20120717
  Receipt Date: 20120706
  Transmission Date: 20120928
  Serious: Yes (Other)
  Sender: FDA-Public Use
  Company Number: US-VERTEX PHARMACEUTICALS INC.-AE-2012-006419

PATIENT
  Sex: Male
  Weight: 83.99 kg

DRUGS (8)
  1. PEGASYS [Concomitant]
     Indication: HEPATITIS C
     Route: 058
     Dates: start: 20120427, end: 20120605
  2. RIBAVIRIN [Concomitant]
     Route: 048
     Dates: start: 20120609, end: 20120622
  3. INCIVEK [Suspect]
     Indication: HEPATITIS C
     Route: 048
     Dates: start: 20120427, end: 20120605
  4. INCIVEK [Suspect]
     Route: 048
     Dates: start: 20120609, end: 20120622
  5. RIBAVIRIN [Concomitant]
     Indication: HEPATITIS C
     Route: 048
     Dates: start: 20120427, end: 20120605
  6. PEGASYS [Concomitant]
     Route: 058
     Dates: start: 20120609
  7. GREEN TEA PILLS [Concomitant]
     Indication: MEDICAL DIET
     Route: 048
  8. GLUCOSAMINE [Concomitant]
     Route: 048

REACTIONS (11)
  - INCREASED UPPER AIRWAY SECRETION [None]
  - OEDEMA PERIPHERAL [None]
  - RENAL DISORDER [None]
  - FEELING JITTERY [None]
  - ASTHENIA [None]
  - VOMITING [None]
  - DEPRESSED MOOD [None]
  - BACK PAIN [None]
  - URTICARIA [None]
  - NAUSEA [None]
  - HEADACHE [None]
